FAERS Safety Report 19046033 (Version 3)
Quarter: 2021Q2

REPORT INFORMATION
  Report Type: Spontaneous
  Country: CN (occurrence: CN)
  Receive Date: 20210322
  Receipt Date: 20210528
  Transmission Date: 20210717
  Serious: Yes (Hospitalization, Other)
  Sender: FDA-Public Use
  Company Number: CN-ASTRAZENECA-2021A011838

PATIENT
  Sex: Male
  Weight: 75 kg

DRUGS (15)
  1. TAGRISSO [Suspect]
     Active Substance: OSIMERTINIB
     Indication: EGFR GENE MUTATION
     Route: 048
     Dates: start: 20201226, end: 20210112
  2. IBUPROFEN. [Concomitant]
     Active Substance: IBUPROFEN
     Indication: RESPIRATORY TRACT INFECTION
     Dates: start: 20210107, end: 20210112
  3. TAGRISSO [Suspect]
     Active Substance: OSIMERTINIB
     Indication: NON-SMALL CELL LUNG CANCER STAGE III
     Route: 048
     Dates: start: 20201226, end: 20210112
  4. IBUPROFEN. [Concomitant]
     Active Substance: IBUPROFEN
     Indication: PYREXIA
     Dates: start: 20210107, end: 20210112
  5. IBUPROFEN. [Concomitant]
     Active Substance: IBUPROFEN
     Indication: PHARYNGITIS
     Dates: start: 20210107, end: 20210112
  6. IBUPROFEN. [Concomitant]
     Active Substance: IBUPROFEN
     Indication: NEURALGIA
     Dates: start: 20210107, end: 20210112
  7. IBUPROFEN. [Concomitant]
     Active Substance: IBUPROFEN
     Indication: ARTHRALGIA
     Dates: start: 20210107, end: 20210112
  8. IBUPROFEN. [Concomitant]
     Active Substance: IBUPROFEN
     Indication: DYSMENORRHOEA
     Dates: start: 20210107, end: 20210112
  9. IBUPROFEN. [Concomitant]
     Active Substance: IBUPROFEN
     Indication: HEADACHE
     Dates: start: 20210107, end: 20210112
  10. IBUPROFEN. [Concomitant]
     Active Substance: IBUPROFEN
     Indication: PAIN
     Dates: start: 20210107, end: 20210112
  11. IBUPROFEN. [Concomitant]
     Active Substance: IBUPROFEN
     Indication: TOOTHACHE
     Dates: start: 20210107, end: 20210112
  12. IBUPROFEN. [Concomitant]
     Active Substance: IBUPROFEN
     Indication: MIGRAINE
     Dates: start: 20210107, end: 20210112
  13. IBUPROFEN. [Concomitant]
     Active Substance: IBUPROFEN
     Indication: PROCEDURAL PAIN
     Dates: start: 20210107, end: 20210112
  14. IBUPROFEN. [Concomitant]
     Active Substance: IBUPROFEN
     Indication: PAIN
     Dates: start: 20210107, end: 20210112
  15. IBUPROFEN. [Concomitant]
     Active Substance: IBUPROFEN
     Indication: MYALGIA
     Dates: start: 20210107, end: 20210112

REACTIONS (9)
  - Jaundice [Recovered/Resolved]
  - Blood bilirubin increased [Recovering/Resolving]
  - Myelosuppression [Unknown]
  - Cardiac failure acute [Recovering/Resolving]
  - Hypoalbuminaemia [Unknown]
  - Hepatic function abnormal [Recovering/Resolving]
  - Pneumonia [Unknown]
  - Cardiac failure chronic [Recovering/Resolving]
  - Hypokalaemia [Unknown]
